FAERS Safety Report 8585613 (Version 8)
Quarter: 2016Q3

REPORT INFORMATION
  Report Type: Spontaneous
  Country: US (occurrence: US)
  Receive Date: 20120530
  Receipt Date: 20160711
  Transmission Date: 20161109
  Serious: Yes (Hospitalization, Other)
  Sender: FDA-Public Use
  Company Number: US-GLAXOSMITHKLINE-A0931181A

PATIENT
  Age: 48 Year
  Sex: Male
  Weight: 71.8 kg

DRUGS (8)
  1. LETAIRIS [Concomitant]
     Active Substance: AMBRISENTAN
  2. SIMVASTATIN. [Concomitant]
     Active Substance: SIMVASTATIN
  3. FLOLAN [Suspect]
     Active Substance: EPOPROSTENOL SODIUM
     Dosage: 51 DF, UNK
  4. FLOLAN [Suspect]
     Active Substance: EPOPROSTENOL SODIUM
     Indication: PULMONARY ARTERIAL HYPERTENSION
     Dosage: 40 UNK, CO
     Route: 065
     Dates: start: 20090127
  5. ASPIRIN. [Concomitant]
     Active Substance: ASPIRIN
  6. FLOLAN [Suspect]
     Active Substance: EPOPROSTENOL SODIUM
     Dosage: 48 NG/KG/MIN
  7. DIGOXIN. [Concomitant]
     Active Substance: DIGOXIN
  8. FLOLAN [Suspect]
     Active Substance: EPOPROSTENOL SODIUM
     Dosage: 49 UNK, CO
     Route: 042
     Dates: start: 2009

REACTIONS (9)
  - Cellulitis [Recovering/Resolving]
  - Catheter site infection [Recovering/Resolving]
  - Temporomandibular joint syndrome [Not Recovered/Not Resolved]
  - Pallor [Recovering/Resolving]
  - Device infusion issue [Recovered/Resolved]
  - Central venous catheter removal [Recovering/Resolving]
  - Central venous catheterisation [Recovering/Resolving]
  - Diplopia [Recovered/Resolved]
  - Dyspnoea [Recovering/Resolving]

NARRATIVE: CASE EVENT DATE: 20110603
